FAERS Safety Report 23579983 (Version 6)
Quarter: 2024Q3

REPORT INFORMATION
  Report Type: Report from Study
  Country: US (occurrence: US)
  Receive Date: 20240229
  Receipt Date: 20240809
  Transmission Date: 20241016
  Serious: Yes (Hospitalization, Other)
  Sender: TAKEDA
  Company Number: US-TAKEDA-2024TUS018607

PATIENT
  Sex: Male
  Weight: 69 kg

DRUGS (3)
  1. ADAMTS13, RECOMBINANT-KRHN [Suspect]
     Active Substance: ADAMTS13, RECOMBINANT-KRHN
     Indication: Thrombotic thrombocytopenic purpura
     Dosage: 3000 INTERNATIONAL UNIT, 1/WEEK
     Route: 065
  2. ADAMTS13, RECOMBINANT-KRHN [Suspect]
     Active Substance: ADAMTS13, RECOMBINANT-KRHN
     Dosage: 3004 INTERNATIONAL UNIT, 1/WEEK
     Route: 042
  3. ADAMTS13, RECOMBINANT-KRHN [Suspect]
     Active Substance: ADAMTS13, RECOMBINANT-KRHN
     Dosage: 3000 INTERNATIONAL UNIT, 2/WEEK
     Route: 042

REACTIONS (7)
  - Thrombotic thrombocytopenic purpura [Unknown]
  - Platelet count decreased [Unknown]
  - Product prescribing issue [Unknown]
  - Gastroenteritis viral [Unknown]
  - COVID-19 [Unknown]
  - Product administration error [Unknown]
  - Platelet count abnormal [Unknown]
